FAERS Safety Report 6250281-7 (Version None)
Quarter: 2009Q2

REPORT INFORMATION
  Report Type: 
  Country: None (occurrence: None)
  Receive Date: 20090626
  Receipt Date: 20090626
  Transmission Date: 20091009
  Serious: Yes (Other)
  Sender: FDA-Public Use
  Company Number: None

PATIENT
  Age: 5 Year
  Sex: Male
  Weight: 25.2 kg

DRUGS (2)
  1. KEPPRA [Suspect]
     Indication: EPILEPSY
     Dosage: 500 MG / 5 ML 10ML BID PO
     Route: 048
     Dates: start: 20071201, end: 20090501
  2. LEVETIRACETAM [Suspect]
     Indication: EPILEPSY
     Dosage: 500 MG / 5 ML 10 ML BID PO
     Route: 048
     Dates: start: 20090501

REACTIONS (1)
  - CONVULSION [None]
